FAERS Safety Report 5314069-3 (Version None)
Quarter: 2007Q2

REPORT INFORMATION
  Report Type: 
  Country: None (occurrence: None)
  Receive Date: 20070501
  Receipt Date: 20070419
  Transmission Date: 20071010
  Serious: Yes (Other)
  Sender: FDA-Public Use
  Company Number: ES-PFIZER INC-2007032051

PATIENT
  Sex: Female
  Weight: 65.909 kg

DRUGS (2)
  1. CHANTIX [Suspect]
     Indication: SMOKING CESSATION THERAPY
     Dates: start: 20070101
  2. STOOL SOFTENER [Concomitant]

REACTIONS (3)
  - CONSTIPATION [None]
  - GALLBLADDER DISORDER [None]
  - WEIGHT DECREASED [None]
